FAERS Safety Report 4449071-7 (Version None)
Quarter: 2004Q3

REPORT INFORMATION
  Report Type: 
  Country: None (occurrence: None)
  Receive Date: 20040909
  Receipt Date: 20040825
  Transmission Date: 20050211
  Serious: Yes (Hospitalization)
  Sender: FDA-Public Use
  Company Number: USA040876452

PATIENT
  Age: 48 Year
  Sex: Female
  Weight: 82 kg

DRUGS (1)
  1. HUMATROPE [Suspect]
     Dosage: 0.6 MG
     Dates: start: 20040312

REACTIONS (1)
  - NEPHROLITHIASIS [None]
